FAERS Safety Report 21146879 (Version 1)
Quarter: 2022Q3

REPORT INFORMATION
  Report Type: Spontaneous
  Country: US (occurrence: None)
  Receive Date: 20220728
  Receipt Date: 20220728
  Transmission Date: 20221027
  Serious: Yes (Other)
  Sender: FDA-Public Use
  Company Number: None

PATIENT
  Age: 74 Year
  Sex: Female
  Weight: 72.9 kg

DRUGS (1)
  1. BEBTELOVIMAB [Suspect]
     Active Substance: BEBTELOVIMAB
     Indication: COVID-19
     Dates: start: 20220727, end: 20220727

REACTIONS (3)
  - Rash [None]
  - Throat tightness [None]
  - Chest discomfort [None]

NARRATIVE: CASE EVENT DATE: 20220727
